FAERS Safety Report 8921002 (Version 1)
Quarter: 2012Q4

REPORT INFORMATION
  Report Type: 
  Country: US (occurrence: US)
  Receive Date: 20121121
  Receipt Date: 20121121
  Transmission Date: 20130627
  Serious: Yes (Other)
  Sender: FDA-Public Use
  Company Number: US-ELI_LILLY_AND_COMPANY-US201211004157

PATIENT
  Age: 58 Year
  Sex: Female

DRUGS (2)
  1. PROZAC [Suspect]
     Dosage: 20 mg, qd
     Dates: start: 2002
  2. WELLBUTRIN [Concomitant]
     Dosage: 300 mg, qd

REACTIONS (2)
  - Breast cancer [Recovered/Resolved]
  - Hot flush [Not Recovered/Not Resolved]
